FAERS Safety Report 6885021-1 (Version None)
Quarter: 2010Q3

REPORT INFORMATION
  Report Type: 
  Country: None (occurrence: None)
  Receive Date: 20100729
  Receipt Date: 20071026
  Transmission Date: 20110219
  Serious: No
  Sender: FDA-Public Use
  Company Number: US-PFIZER INC-2007091204

PATIENT
  Sex: Female

DRUGS (4)
  1. CELEBREX [Suspect]
     Indication: ARTHRALGIA
     Dates: start: 20070101
  2. CELEBREX [Suspect]
     Indication: PAIN IN EXTREMITY
  3. ZETIA [Concomitant]
  4. PROTONIX [Concomitant]

REACTIONS (3)
  - ABDOMINAL DISCOMFORT [None]
  - DIARRHOEA [None]
  - HEADACHE [None]
